FAERS Safety Report 4767557-2 (Version None)
Quarter: 2005Q3

REPORT INFORMATION
  Report Type: 
  Country: None (occurrence: None)
  Receive Date: 20050913
  Receipt Date: 20050907
  Transmission Date: 20060218
  Serious: Yes (Death, Hospitalization)
  Sender: FDA-Public Use
  Company Number: US-JNJFOC-20050901633

PATIENT
  Age: 45 Year
  Sex: Female

DRUGS (5)
  1. ACETAMINOPHEN [Suspect]
     Route: 048
  2. ACETAMINOPHEN [Suspect]
     Indication: SUICIDE ATTEMPT
     Route: 048
  3. CARISOPRODOL [Suspect]
     Indication: SUICIDE ATTEMPT
     Route: 048
  4. ETHANOL [Suspect]
     Indication: SUICIDE ATTEMPT
     Route: 048
  5. MEPROBAMATE [Suspect]
     Indication: SUICIDE ATTEMPT
     Route: 048

REACTIONS (11)
  - ALCOHOL POISONING [None]
  - ATELECTASIS [None]
  - BRONCHOPNEUMONIA [None]
  - CARDIO-RESPIRATORY ARREST [None]
  - COMPLETED SUICIDE [None]
  - DRUG TOXICITY [None]
  - GASTRITIS EROSIVE [None]
  - GASTRITIS HAEMORRHAGIC [None]
  - HEPATIC NECROSIS [None]
  - OVERDOSE [None]
  - RENAL TUBULAR NECROSIS [None]
